FAERS Safety Report 5229759-0 (Version None)
Quarter: 2007Q1

REPORT INFORMATION
  Report Type: 
  Country: None (occurrence: None)
  Receive Date: 20070206
  Receipt Date: 20070131
  Transmission Date: 20070707
  Serious: Yes (Hospitalization)
  Sender: FDA-Public Use
  Company Number: US-AVENTIS-200710322US

PATIENT
  Sex: Female

DRUGS (10)
  1. TAXOTERE [Suspect]
     Indication: OVARIAN CANCER
     Dates: start: 20061115, end: 20061115
  2. TAXOTERE [Suspect]
     Dates: start: 20061122, end: 20061122
  3. TAXOTERE [Suspect]
     Dates: start: 20061129, end: 20061129
  4. TAXOTERE [Suspect]
     Dates: start: 20061213, end: 20061213
  5. TAXOTERE [Suspect]
     Dates: start: 20061220, end: 20061220
  6. HERCEPTIN [Concomitant]
     Indication: OVARIAN CANCER
     Dates: start: 20061018, end: 20061018
  7. HERCEPTIN [Concomitant]
     Dates: start: 20061108, end: 20061108
  8. HERCEPTIN [Concomitant]
     Dates: start: 20061129, end: 20061129
  9. HERCEPTIN [Concomitant]
     Dates: start: 20061220, end: 20061220
  10. TAMOXIFEN CITRATE [Concomitant]
     Indication: OVARIAN CANCER
     Dosage: DOSE: UNK
     Dates: start: 20061010

REACTIONS (3)
  - CARBOHYDRATE ANTIGEN 125 INCREASED [None]
  - DRUG INEFFECTIVE [None]
  - PANCREATITIS [None]
